FAERS Safety Report 21680791 (Version 1)
Quarter: 2022Q4

REPORT INFORMATION
  Report Type: Report from Study
  Country: US (occurrence: US)
  Receive Date: 20221205
  Receipt Date: 20221205
  Transmission Date: 20230113
  Serious: Yes (Hospitalization)
  Sender: FDA-Public Use
  Company Number: US-BRISTOL-MYERS SQUIBB COMPANY-2022-106138

PATIENT
  Age: 81 Year
  Sex: Male
  Weight: 83.9 kg

DRUGS (9)
  1. REVLIMID [Suspect]
     Active Substance: LENALIDOMIDE
     Indication: Plasma cell myeloma
     Dosage: DAILY FOR 21 OF 28 DAYS.
     Route: 048
  2. REVLIMID [Suspect]
     Active Substance: LENALIDOMIDE
     Indication: Iron deficiency anaemia
  3. REVLIMID [Suspect]
     Active Substance: LENALIDOMIDE
     Indication: Bladder cancer
  4. POMALYST [Suspect]
     Active Substance: POMALIDOMIDE
     Indication: Plasma cell myeloma
     Route: 048
     Dates: start: 20220910
  5. POMALYST [Suspect]
     Active Substance: POMALIDOMIDE
     Indication: Iron deficiency anaemia
  6. POMALYST [Suspect]
     Active Substance: POMALIDOMIDE
     Indication: Bladder cancer
  7. POMALYST [Suspect]
     Active Substance: POMALIDOMIDE
     Indication: Acute kidney injury
  8. DEXAMETHASONE [Suspect]
     Active Substance: DEXAMETHASONE
     Indication: Product used for unknown indication
     Route: 065
  9. VELCADE [Concomitant]
     Active Substance: BORTEZOMIB

REACTIONS (4)
  - Feeling jittery [Unknown]
  - Tremor [Unknown]
  - Dizziness [Recovering/Resolving]
  - Illness [Unknown]
